FAERS Safety Report 21435869 (Version 1)
Quarter: 2022Q4

REPORT INFORMATION
  Report Type: Spontaneous
  Country: FR (occurrence: FR)
  Receive Date: 20221010
  Receipt Date: 20221010
  Transmission Date: 20230112
  Serious: Yes (Life-Threatening)
  Sender: FDA-Public Use
  Company Number: None

PATIENT
  Age: 32 Year
  Sex: Female
  Weight: 75 kg

DRUGS (3)
  1. VANCOMYCIN [Suspect]
     Active Substance: VANCOMYCIN
     Indication: Antibiotic prophylaxis
     Dosage: 250 MG, TOTAL
     Route: 042
     Dates: start: 20220125, end: 20220125
  2. SUFENTANIL [Suspect]
     Active Substance: SUFENTANIL
     Indication: General anaesthesia
     Dosage: 20 UG, TOTAL
     Route: 042
     Dates: start: 20220125, end: 20220125
  3. PROPOFOL LIPURO [Suspect]
     Active Substance: PROPOFOL
     Indication: General anaesthesia
     Dosage: 400 MG, TOTAL
     Route: 042
     Dates: start: 20220125, end: 20220125

REACTIONS (1)
  - Anaphylactic shock [Recovered/Resolved]

NARRATIVE: CASE EVENT DATE: 20220125
